FAERS Safety Report 7934811 (Version 4)
Quarter: 2013Q4

REPORT INFORMATION
  Report Type: Spontaneous
  Country: US (occurrence: US)
  Receive Date: 20110509
  Receipt Date: 20131230
  Transmission Date: 20140711
  Serious: Yes (Hospitalization, Other)
  Sender: FDA-Public Use
  Company Number: US-BAYER-2011-038772

PATIENT
  Age: 39 Year
  Sex: Female

DRUGS (7)
  1. YAZ [Suspect]
     Indication: CONTRACEPTION
     Dosage: UNK
     Dates: start: 200601, end: 200901
  2. YASMIN [Suspect]
     Indication: CONTRACEPTION
     Dosage: UNK
     Dates: start: 200601, end: 200901
  3. BUTALBITAL/CAFFEINE/PARACETAMOL/ [Concomitant]
     Dosage: UNK UNK, Q4HR
  4. VIGAMOX [Concomitant]
     Dosage: UNK UNK, TID
     Route: 047
  5. OXYCODONE/APAP [Concomitant]
     Dosage: UNK UNK, Q4HR
  6. IBUPROFEN [Concomitant]
     Dosage: 600 MG, UNK
  7. CENTRUM SILVER [Concomitant]

REACTIONS (4)
  - Gallbladder disorder [Unknown]
  - Pain [Unknown]
  - Abdominal pain [Unknown]
  - Cholecystitis chronic [None]
